FAERS Safety Report 16991207 (Version 1)
Quarter: 2019Q4

REPORT INFORMATION
  Report Type: Spontaneous
  Country: US (occurrence: US)
  Receive Date: 20190920
  Receipt Date: 20190920
  Transmission Date: 20200122
  Serious: Yes (Hospitalization)
  Sender: FDA-Public Use
  Company Number: None

PATIENT
  Age: 52 Year
  Sex: Male

DRUGS (16)
  1. ENBREL [Suspect]
     Active Substance: ETANERCEPT
     Indication: RHEUMATOID ARTHRITIS
     Route: 058
     Dates: start: 20180627
  2. AMOXICILLIN. [Concomitant]
     Active Substance: AMOXICILLIN
  3. TAMIFLU [Concomitant]
     Active Substance: OSELTAMIVIR PHOSPHATE
  4. PREDNISONE. [Concomitant]
     Active Substance: PREDNISONE
  5. APAP/CODEINE [Concomitant]
     Active Substance: ACETAMINOPHEN\CODEINE PHOSPHATE
  6. CEPHALEXIN. [Concomitant]
     Active Substance: CEPHALEXIN
  7. CELECOXIB. [Concomitant]
     Active Substance: CELECOXIB
  8. FOLIC ACID. [Concomitant]
     Active Substance: FOLIC ACID
  9. MELOXICAM. [Concomitant]
     Active Substance: MELOXICAM
  10. NAPROXEN. [Concomitant]
     Active Substance: NAPROXEN
  11. DICLOFENAC [Concomitant]
     Active Substance: DICLOFENAC
  12. MUPIROCIN. [Concomitant]
     Active Substance: MUPIROCIN
  13. OMEPRAZOLE. [Concomitant]
     Active Substance: OMEPRAZOLE
  14. SULFAMETHOX [Concomitant]
  15. METHOTREXATE. [Concomitant]
     Active Substance: METHOTREXATE
  16. RANITIDINE. [Concomitant]
     Active Substance: RANITIDINE

REACTIONS (2)
  - Therapy cessation [None]
  - Surgery [None]

NARRATIVE: CASE EVENT DATE: 20190801
